FAERS Safety Report 6126199-7 (Version None)
Quarter: 2009Q1

REPORT INFORMATION
  Report Type: 
  Country: None (occurrence: None)
  Receive Date: 20090320
  Receipt Date: 20090312
  Transmission Date: 20090719
  Serious: Yes (Hospitalization)
  Sender: FDA-Public Use
  Company Number: B0564670A

PATIENT
  Age: 55 Year
  Sex: Male

DRUGS (3)
  1. DEROXAT [Suspect]
     Indication: PANIC ATTACK
     Dosage: 1UNIT PER DAY
     Route: 048
     Dates: start: 20081124, end: 20081128
  2. LYSANXIA [Suspect]
     Indication: DRUG USE FOR UNKNOWN INDICATION
     Route: 048
     Dates: start: 20081001, end: 20081129
  3. ZOLPIDEM [Concomitant]
     Route: 065

REACTIONS (7)
  - BURNING SENSATION [None]
  - HYPERTHERMIA [None]
  - RASH ERYTHEMATOUS [None]
  - RASH MACULO-PAPULAR [None]
  - RASH MORBILLIFORM [None]
  - SKIN EXFOLIATION [None]
  - TOXIC SKIN ERUPTION [None]
